FAERS Safety Report 6422089-0 (Version None)
Quarter: 2009Q4

REPORT INFORMATION
  Report Type: 
  Country: None (occurrence: None)
  Receive Date: 20091030
  Receipt Date: 20091020
  Transmission Date: 20100525
  Serious: No
  Sender: FDA-Public Use
  Company Number: US-JNJFOC-20091007024

PATIENT
  Sex: Female
  Weight: 51.71 kg

DRUGS (6)
  1. DURAGESIC-100 [Suspect]
     Route: 062
  2. DURAGESIC-100 [Suspect]
     Route: 062
  3. DURAGESIC-100 [Suspect]
     Indication: BACK PAIN
     Route: 062
  4. PREMARIN [Concomitant]
     Route: 065
  5. SYNTHROID [Concomitant]
     Route: 065
  6. AMBIEN [Concomitant]
     Indication: INSOMNIA
     Route: 065

REACTIONS (4)
  - APPLICATION SITE EROSION [None]
  - APPLICATION SITE PRURITUS [None]
  - DERMATITIS CONTACT [None]
  - WRONG TECHNIQUE IN DRUG USAGE PROCESS [None]
